FAERS Safety Report 5313534-2 (Version None)
Quarter: 2007Q2

REPORT INFORMATION
  Report Type: 
  Country: None (occurrence: None)
  Receive Date: 20070501
  Receipt Date: 20060802
  Transmission Date: 20071010
  Serious: No
  Sender: FDA-Public Use
  Company Number: 2006UW15494

PATIENT
  Age: 66 Year
  Sex: Female
  Weight: 62.1 kg

DRUGS (1)
  1. ENTOCORT EC [Suspect]
     Indication: COLITIS
     Route: 048

REACTIONS (6)
  - DRY MOUTH [None]
  - DYSGEUSIA [None]
  - GLOSSODYNIA [None]
  - NERVOUSNESS [None]
  - ORAL PAIN [None]
  - TOOTH DISORDER [None]
